FAERS Safety Report 5292438-8 (Version None)
Quarter: 2007Q2

REPORT INFORMATION
  Report Type: 
  Country: None (occurrence: None)
  Receive Date: 20070410
  Receipt Date: 20070402
  Transmission Date: 20071010
  Serious: Yes (Hospitalization, Other)
  Sender: FDA-Public Use
  Company Number: US-PFIZER INC-2006142249

PATIENT
  Sex: Male
  Weight: 85.7 kg

DRUGS (2)
  1. CELEBREX [Suspect]
     Indication: PAIN
  2. CELEBREX [Suspect]
     Indication: ARTHRITIS

REACTIONS (15)
  - AMNESIA [None]
  - AORTIC DISSECTION [None]
  - AORTIC VALVE INCOMPETENCE [None]
  - AORTIC VALVE SCLEROSIS [None]
  - ATELECTASIS [None]
  - BRAIN DAMAGE [None]
  - BUNDLE BRANCH BLOCK LEFT [None]
  - CARDIAC HYPERTROPHY [None]
  - CARDIOVASCULAR DISORDER [None]
  - CEREBRAL HAEMORRHAGE [None]
  - DEPRESSION [None]
  - HAEMOTHORAX [None]
  - MYOCARDIAL INFARCTION [None]
  - PLEURAL EFFUSION [None]
  - PULMONARY VALVE INCOMPETENCE [None]
